FAERS Safety Report 6119336-1 (Version None)
Quarter: 2009Q1

REPORT INFORMATION
  Report Type: 
  Country: None (occurrence: None)
  Receive Date: 20090316
  Receipt Date: 20090304
  Transmission Date: 20090719
  Serious: Yes (Hospitalization, Other)
  Sender: FDA-Public Use
  Company Number: US-ELI_LILLY_AND_COMPANY-US200903001366

PATIENT
  Sex: Female

DRUGS (5)
  1. CYMBALTA [Suspect]
     Indication: DEPRESSION
     Dosage: 60 MG, DAILY (1/D)
     Dates: start: 20080101
  2. SYNTHROID [Concomitant]
  3. LORAZEPAM [Concomitant]
     Indication: ANXIETY
  4. TOPROL-XL [Concomitant]
     Indication: BLOOD PRESSURE
  5. PREVACID [Concomitant]

REACTIONS (6)
  - ABDOMINAL PAIN UPPER [None]
  - BACK PAIN [None]
  - BLOOD AMYLASE [None]
  - CHEST PAIN [None]
  - LIPASE [None]
  - PANCREATITIS [None]
